FAERS Safety Report 19710998 (Version 3)
Quarter: 2022Q1

REPORT INFORMATION
  Report Type: Spontaneous
  Country: IT (occurrence: IT)
  Receive Date: 20210817
  Receipt Date: 20220302
  Transmission Date: 20220423
  Serious: Yes (Hospitalization)
  Sender: FDA-Public Use
  Company Number: IT-JNJFOC-20210816301

PATIENT
  Age: 53 Year
  Sex: Female

DRUGS (3)
  1. HALOPERIDOL [Suspect]
     Active Substance: HALOPERIDOL
     Indication: Prophylaxis against psychomotor agitation
     Dosage: (2MG / ML)
     Route: 048
     Dates: start: 20210731
  2. LITHIUM [Suspect]
     Active Substance: LITHIUM
     Indication: Prophylaxis against psychomotor agitation
     Route: 048
     Dates: start: 20210731
  3. AKINETON [Concomitant]
     Active Substance: BIPERIDEN HYDROCHLORIDE
     Route: 048

REACTIONS (15)
  - Drug abuse [Recovered/Resolved]
  - Altered state of consciousness [Recovered/Resolved]
  - Pancreatitis [Not Recovered/Not Resolved]
  - Nutritional condition abnormal [Recovered/Resolved]
  - Antipsychotic drug level increased [Recovered/Resolved]
  - Blood creatinine increased [Recovered/Resolved]
  - Red blood cell sedimentation rate increased [Recovered/Resolved]
  - Tremor [Recovered/Resolved]
  - Sedation [Recovered/Resolved]
  - Hypotension [Recovered/Resolved]
  - Transaminases increased [Recovered/Resolved]
  - Renal failure [Recovered/Resolved]
  - Blood sodium increased [Recovered/Resolved]
  - Fibrin D dimer increased [Not Recovered/Not Resolved]
  - Muscle rigidity [Recovered/Resolved]

NARRATIVE: CASE EVENT DATE: 20210731
